FAERS Safety Report 10648809 (Version 1)
Quarter: 2014Q4

REPORT INFORMATION
  Report Type: Spontaneous
  Country: US (occurrence: None)
  Receive Date: 20141205
  Receipt Date: 20141205
  Transmission Date: 20150529
  Serious: No
  Sender: FDA-Public Use
  Company Number: USA-2014103009

PATIENT
  Age: 71 Year
  Sex: Male
  Weight: 117.9 kg

DRUGS (19)
  1. SYNTHROID(LEVOTHYROXINE SODIUM) (UNKNOWN) [Concomitant]
  2. POMALYST [Suspect]
     Active Substance: POMALIDOMIDE
     Indication: PLASMA CELL MYELOMA
     Dosage: 1 IN 1 D
     Route: 048
     Dates: start: 201407
  3. FUROSEMIDE(FUROSEMIDE) (UNKNOWN) [Concomitant]
  4. DEXAMETHASONE(DEXAMETHASONE) (UNKNOWN) [Concomitant]
  5. VITAMIN B6(PYRIDOXINE HYDROCHLORIDE) (UNKNOWN) [Concomitant]
  6. DOCOLACE(DOCUSATE) (UNKNOWN) [Concomitant]
  7. MULTIVITAMINS(ERGOCALCIFEROL, ASCORBIC ACID, FOLIC ACID, THIAMINE HYDROCHLORIDE, RETINOL, RIBOFLAVIN, NICOTINAMIDE, PANTHENOL) (UNKNOWN) [Concomitant]
  8. ECOTRIN(ACETYLSALICYLIC ACID) (UNKNOWN) [Concomitant]
  9. POTASSIUM CHLORIDE(POTASSIUM CHLORIDE) (UNKNOWN) [Concomitant]
  10. VYTORIN(SIMVASTATIN, EZETIMIBE) (UNKNOWN) [Concomitant]
  11. METOLAZONE(METOLAZONE) (UNKNOWN) [Concomitant]
  12. PREDNISONE(PREDNISONE) (UNKNOWN) [Concomitant]
  13. AMLODIPINE BESYLATE(AMLODIPINE BESILATE) (UNKNOWN) [Concomitant]
  14. OMEPRAZOLE(OMEPRAZOLE) (UNKNOWN) [Concomitant]
  15. VITAMIN E(VITAMIN E NOS) (UNKNOWN) [Concomitant]
  16. VITAMIN D(VITAMIN D NOS) (UNKNOWN) [Concomitant]
  17. VALACYCLOVIR(VALACICLOVIR HYDROCHLORIDE) (UNKNOWN) [Concomitant]
  18. SPIRONOLACTONE(SPIRONOLACTONE) (UNKNOWN) [Concomitant]
  19. VITAMIN C (ASCORBIC ACID) (UNKNOWN) [Concomitant]

REACTIONS (3)
  - Asthenia [None]
  - Upper respiratory tract infection [None]
  - Pollakiuria [None]

NARRATIVE: CASE EVENT DATE: 2014
